FAERS Safety Report 25690697 (Version 4)
Quarter: 2025Q4

REPORT INFORMATION
  Report Type: Spontaneous
  Country: US (occurrence: US)
  Receive Date: 20250818
  Receipt Date: 20251028
  Transmission Date: 20260118
  Serious: No
  Sender: PFIZER
  Company Number: US-PFIZER INC-202500163972

PATIENT
  Age: 18 Year
  Sex: Male
  Weight: 68.04 kg

DRUGS (2)
  1. GENOTROPIN [Suspect]
     Active Substance: SOMATROPIN
     Indication: Growth hormone deficiency
     Dosage: 3 MG, 1X/DAY, INJECT IT ON BOTH OF MY LEG AND MY ABDOMINAL
     Dates: start: 20250806, end: 20250813
  2. COLESTIPOL [Concomitant]
     Active Substance: COLESTIPOL
     Indication: Irritable bowel syndrome
     Dosage: TAKE IT EVERY OTHER DAY. SO, I TAKE IT 4 TIMES A WEEK.

REACTIONS (3)
  - Wrong technique in device usage process [Unknown]
  - Device breakage [Unknown]
  - Drug dose omission by device [Unknown]

NARRATIVE: CASE EVENT DATE: 20250813
